FAERS Safety Report 19958197 (Version 1)
Quarter: 2021Q4

REPORT INFORMATION
  Report Type: Spontaneous
  Country: JP (occurrence: JP)
  Receive Date: 20211015
  Receipt Date: 20211015
  Transmission Date: 20220303
  Serious: Yes (Hospitalization)
  Sender: FDA-Public Use
  Company Number: JP-ELI_LILLY_AND_COMPANY-JP202108008798

PATIENT
  Age: 71 Year
  Sex: Male
  Weight: 49.8 kg

DRUGS (9)
  1. NECITUMUMAB [Suspect]
     Active Substance: NECITUMUMAB
     Indication: Squamous cell carcinoma of lung
     Dosage: 800 MG, UNKNOWN
     Route: 041
     Dates: start: 20210803, end: 20210810
  2. GEMCITABINE HYDROCHLORIDE [Suspect]
     Active Substance: GEMCITABINE HYDROCHLORIDE
     Indication: Squamous cell carcinoma of lung
     Dosage: 1926 MG, UNKNOWN
     Route: 041
     Dates: start: 20210803, end: 20210810
  3. CISPLATIN [Suspect]
     Active Substance: CISPLATIN
     Indication: Squamous cell carcinoma of lung
     Dosage: 110 MG, UNKNOWN
     Route: 042
     Dates: start: 20210803, end: 20210803
  4. MAGNESIUM SULFATE [Concomitant]
     Active Substance: MAGNESIUM SULFATE
     Indication: Electrolyte substitution therapy
     Dosage: UNK
     Dates: start: 20210803, end: 20210803
  5. IMIDAFENACIN [Concomitant]
     Active Substance: IMIDAFENACIN
  6. JANUVIA [Concomitant]
     Active Substance: SITAGLIPTIN PHOSPHATE
  7. MITIGLINIDE CALCIUM HYDRATE\VOGLIBOSE [Concomitant]
     Active Substance: MITIGLINIDE CALCIUM HYDRATE\VOGLIBOSE
  8. METHADONE HYDROCHLORIDE [Concomitant]
     Active Substance: METHADONE HYDROCHLORIDE
     Indication: Neuralgia
  9. ACONITUM NAPELLUS ROOT [Concomitant]
     Active Substance: ACONITUM NAPELLUS ROOT

REACTIONS (2)
  - Thrombocytopenia [Recovered/Resolved]
  - Neutrophil count decreased [Unknown]

NARRATIVE: CASE EVENT DATE: 20210810
